FAERS Safety Report 8276342-9 (Version None)
Quarter: 2012Q2

REPORT INFORMATION
  Report Type: 
  Country: None (occurrence: None)
  Receive Date: 20120412
  Receipt Date: 20120404
  Transmission Date: 20120825
  Serious: Yes (Other)
  Sender: FDA-Public Use
  Company Number: GB-JNJFOC-20120403940

PATIENT
  Age: 57 Year
  Sex: Male

DRUGS (5)
  1. OTHER THERAPEUTIC DRUGS [Concomitant]
     Indication: ASTHMA
     Route: 065
     Dates: start: 20110901
  2. QUETIAPINE [Concomitant]
     Indication: PRODUCT USED FOR UNKNOWN INDICATION
     Route: 048
     Dates: start: 20090101, end: 20111101
  3. LITHIUM CARBONATE [Concomitant]
     Indication: DEPRESSION
     Route: 048
     Dates: start: 20050101, end: 20111101
  4. RISPERIDONE [Suspect]
     Indication: DEPRESSION
     Route: 048
     Dates: start: 20111101
  5. VENLAFAXINE [Concomitant]
     Indication: DEPRESSION
     Route: 048
     Dates: start: 20090101

REACTIONS (1)
  - ASTHMA [None]
